FAERS Safety Report 6550672-0 (Version None)
Quarter: 2010Q1

REPORT INFORMATION
  Report Type: 
  Country: None (occurrence: None)
  Receive Date: 20100125
  Receipt Date: 20090522
  Transmission Date: 20100710
  Serious: No
  Sender: FDA-Public Use
  Company Number: US-TYCO HEALTHCARE/MALLINCKRODT-T200901095

PATIENT
  Sex: Female

DRUGS (4)
  1. OPTIRAY 350 [Suspect]
     Indication: COMPUTERISED TOMOGRAM
     Dosage: 100 ML, SINGLE
     Route: 042
     Dates: start: 20090506, end: 20090506
  2. ALBUTEROL [Concomitant]
  3. ADVAIR [Concomitant]
  4. CLARINEX                           /01202601/ [Concomitant]

REACTIONS (4)
  - NASAL CONGESTION [None]
  - NAUSEA [None]
  - SNEEZING [None]
  - THROAT IRRITATION [None]
